FAERS Safety Report 5413152-1 (Version None)
Quarter: 2007Q3

REPORT INFORMATION
  Report Type: 
  Country: None (occurrence: None)
  Receive Date: 20070810
  Receipt Date: 20070726
  Transmission Date: 20080115
  Serious: Yes (Hospitalization, Other)
  Sender: FDA-Public Use
  Company Number: 07-001388

PATIENT
  Age: 51 Year
  Sex: Female
  Weight: 68 kg

DRUGS (7)
  1. FEMHRT [Suspect]
     Indication: HORMONE REPLACEMENT THERAPY
     Dosage: 0.5MG/2.5MCG, QD, ORAL
     Route: 048
     Dates: start: 20050101
  2. OMNICEF /01130201/(CEFDINIR) CAPSULE, 300MG [Suspect]
     Indication: ABSCESS LIMB
     Dosage: 300 MG, ORAL
     Route: 048
     Dates: start: 20060401, end: 20060401
  3. AMBIEN [Concomitant]
  4. ASPIRIN [Concomitant]
  5. MULTIVITAMIN [Concomitant]
  6. FISH OIL (FISH OIL) TABLET [Concomitant]
  7. VITAMIN B12 [Concomitant]

REACTIONS (17)
  - ABSCESS LIMB [None]
  - AMNESIA [None]
  - BACK PAIN [None]
  - CEREBROVASCULAR ACCIDENT [None]
  - CONFUSIONAL STATE [None]
  - CONVULSION [None]
  - DIZZINESS [None]
  - FATIGUE [None]
  - LOSS OF CONSCIOUSNESS [None]
  - NAUSEA [None]
  - NECK PAIN [None]
  - PANIC ATTACK [None]
  - PARALYSIS [None]
  - PLANTAR FASCIITIS [None]
  - RASH [None]
  - TONIC CLONIC MOVEMENTS [None]
  - URTICARIA [None]
